FAERS Safety Report 26167924 (Version 2)
Quarter: 2025Q4

REPORT INFORMATION
  Report Type: Spontaneous
  Country: US (occurrence: US)
  Receive Date: 20251217
  Receipt Date: 20251223
  Transmission Date: 20260119
  Serious: No
  Sender: ABBVIE
  Company Number: US-ABBVIE-6592411

PATIENT
  Age: 51 Year
  Sex: Female
  Weight: 76.203 kg

DRUGS (1)
  1. CREON [Suspect]
     Active Substance: PANCRELIPASE AMYLASE\PANCRELIPASE LIPASE\PANCRELIPASE PROTEASE
     Indication: Pancreatic failure
     Route: 048
     Dates: start: 20251107

REACTIONS (2)
  - Incorrect dose administered [Unknown]
  - Product dose confusion [Unknown]

NARRATIVE: CASE EVENT DATE: 20250101
